FAERS Safety Report 16633531 (Version 1)
Quarter: 2019Q3

REPORT INFORMATION
  Report Type: Spontaneous
  Country: US (occurrence: US)
  Receive Date: 20190725
  Receipt Date: 20190725
  Transmission Date: 20191004
  Serious: Yes (Death)
  Sender: FDA-Public Use
  Company Number: None

PATIENT
  Age: 63 Year
  Sex: Male

DRUGS (1)
  1. TRINTELLIX [Suspect]
     Active Substance: VORTIOXETINE HYDROBROMIDE
     Indication: DEPRESSION

REACTIONS (8)
  - Completed suicide [None]
  - Insomnia [None]
  - Panic attack [None]
  - Tremor [None]
  - Anger [None]
  - Weight decreased [None]
  - Abnormal behaviour [None]
  - Anxiety [None]

NARRATIVE: CASE EVENT DATE: 20190720
